FAERS Safety Report 16938325 (Version 1)
Quarter: 2019Q4

REPORT INFORMATION
  Report Type: Spontaneous
  Country: FR (occurrence: FR)
  Receive Date: 20191019
  Receipt Date: 20191019
  Transmission Date: 20200122
  Serious: Yes (Hospitalization, Other)
  Sender: FDA-Public Use
  Company Number: NVSC2019FR002952

PATIENT
  Age: 59 Year
  Sex: Female

DRUGS (3)
  1. IMATINIB. [Suspect]
     Active Substance: IMATINIB MESYLATE
     Dosage: 800 MG, QD
     Route: 065
     Dates: start: 201711
  2. IMATINIB. [Suspect]
     Active Substance: IMATINIB MESYLATE
     Indication: ABDOMINAL COMPARTMENT SYNDROME
     Dosage: 400 UNK
     Route: 065
     Dates: start: 201703
  3. IMATINIB. [Suspect]
     Active Substance: IMATINIB MESYLATE
     Indication: GASTROINTESTINAL STROMAL TUMOUR
     Dosage: 800 MG, QD (DAY 1, D1)
     Route: 065

REACTIONS (3)
  - Malignant neoplasm progression [Unknown]
  - Concomitant disease aggravated [Unknown]
  - Gastrointestinal stromal tumour [Unknown]

NARRATIVE: CASE EVENT DATE: 201711
